FAERS Safety Report 6939172-3 (Version None)
Quarter: 2010Q3

REPORT INFORMATION
  Report Type: 
  Country: None (occurrence: None)
  Receive Date: 20100824
  Receipt Date: 20100812
  Transmission Date: 20110219
  Serious: Yes (Disabling, Other)
  Sender: FDA-Public Use
  Company Number: US-PFIZER INC-2010101893

PATIENT
  Sex: Female
  Weight: 79.365 kg

DRUGS (4)
  1. NEURONTIN [Suspect]
     Indication: BURNING SENSATION
     Dosage: 100 MG, 3X/DAY
     Route: 048
     Dates: start: 20100801
  2. LEVAQUIN [Suspect]
     Indication: ENCEPHALITIS
     Dosage: UNK
     Dates: end: 20100801
  3. MULTI-VITAMINS [Concomitant]
     Dosage: UNK
  4. ASCORBIC ACID [Concomitant]
     Dosage: UNK

REACTIONS (7)
  - ABASIA [None]
  - DROOLING [None]
  - DYSPHEMIA [None]
  - FEELING ABNORMAL [None]
  - NEUROLOGICAL SYMPTOM [None]
  - OEDEMA PERIPHERAL [None]
  - PERONEAL NERVE PALSY [None]
